FAERS Safety Report 10674459 (Version 1)
Quarter: 2014Q4

REPORT INFORMATION
  Report Type: Spontaneous
  Country: US (occurrence: None)
  Receive Date: 20141210
  Receipt Date: 20141210
  Transmission Date: 20150529
  Serious: Yes (Other)
  Sender: FDA-Public Use
  Company Number: ALL1-2014-00573

PATIENT
  Sex: Female

DRUGS (1)
  1. MAS [Suspect]
     Active Substance: AMPHETAMINE
     Indication: PRODUCT USED FOR UNKNOWN INDICATION
     Dosage: OTHER( 2 CAPSULES DAILY),
     Route: 048

REACTIONS (4)
  - Depression [None]
  - Prescribed overdose [None]
  - Drug ineffective [None]
  - Fatigue [None]

NARRATIVE: CASE EVENT DATE: 20140119
